FAERS Safety Report 5820384-7 (Version None)
Quarter: 2008Q3

REPORT INFORMATION
  Report Type: 
  Country: None (occurrence: None)
  Receive Date: 20080724
  Receipt Date: 20070620
  Transmission Date: 20090109
  Serious: No
  Sender: FDA-Public Use
  Company Number: A0658965A

PATIENT
  Age: 70 Year
  Sex: Female

DRUGS (13)
  1. AVANDIA [Suspect]
     Dosage: 8MG PER DAY
     Route: 048
     Dates: start: 20040101
  2. LASIX [Concomitant]
  3. HYDROCHLOROTHIAZIDE [Concomitant]
  4. METFORMIN [Concomitant]
  5. GLIPIZIDE [Concomitant]
  6. OXYGEN [Concomitant]
  7. ACCOLATE [Concomitant]
  8. ADVAIR DISKUS 100/50 [Concomitant]
  9. ALLEGRA [Concomitant]
  10. ALBUTEROL [Concomitant]
  11. PREMARIN [Concomitant]
  12. SIMVASTATIN [Concomitant]
  13. FLUTICASONE PROPIONATE [Concomitant]

REACTIONS (2)
  - FAT TISSUE INCREASED [None]
  - WEIGHT INCREASED [None]
